FAERS Safety Report 14154914 (Version 1)
Quarter: 2017Q4

REPORT INFORMATION
  Report Type: Spontaneous
  Country: US (occurrence: None)
  Receive Date: 20171102
  Receipt Date: 20171102
  Transmission Date: 20180321
  Serious: Yes (Hospitalization)
  Sender: FDA-Public Use
  Company Number: None

PATIENT
  Age: 24 Year
  Sex: Female

DRUGS (11)
  1. PULMOZYME [Suspect]
     Active Substance: DORNASE ALFA
     Indication: CYSTIC FIBROSIS
     Dosage: 2.5MG/2.5ML QD ORAL NEBULIZER
     Route: 048
     Dates: start: 20150909
  2. AQUADEKS [Concomitant]
     Active Substance: MINERALS\VITAMINS
  3. CAYSTON [Concomitant]
     Active Substance: AZTREONAM
  4. STERILE WATER [Concomitant]
     Active Substance: WATER
  5. CREON [Suspect]
     Active Substance: PANCRELIPASE AMYLASE\PANCRELIPASE LIPASE\PANCRELIPASE PROTEASE
     Indication: CYSTIC FIBROSIS
     Dosage: 24,000 UNITS 3-4 CAPS WITH MEALS, SNACKS ORAL
     Route: 048
     Dates: start: 20151110
  6. AZITHROMYCIN ANHYDROUS. [Concomitant]
     Active Substance: AZITHROMYCIN ANHYDROUS
  7. ADVAIR HFA [Concomitant]
     Active Substance: FLUTICASONE PROPIONATE\SALMETEROL XINAFOATE
  8. LORATADINE. [Concomitant]
     Active Substance: LORATADINE
  9. PROVENTIL [Concomitant]
     Active Substance: ALBUTEROL
  10. LORATADINE. [Concomitant]
     Active Substance: LORATADINE
  11. ALTERA [Concomitant]

REACTIONS (1)
  - Hospitalisation [None]
